FAERS Safety Report 23503232 (Version 1)
Quarter: 2024Q1

REPORT INFORMATION
  Report Type: Spontaneous
  Country: US (occurrence: US)
  Receive Date: 20240208
  Receipt Date: 20240208
  Transmission Date: 20240410
  Serious: Yes (Other)
  Sender: FDA-Public Use
  Company Number: US-BEH-2024168301

PATIENT
  Age: 39 Year
  Sex: Female

DRUGS (5)
  1. HUMAN IMMUNOGLOBULIN G [Suspect]
     Active Substance: HUMAN IMMUNOGLOBULIN G
     Indication: Long QT syndrome congenital
     Route: 042
  2. DEXAMETHASONE [Suspect]
     Active Substance: DEXAMETHASONE
     Route: 065
  3. NADOLOL [Suspect]
     Active Substance: NADOLOL
     Indication: Arrhythmia prophylaxis
     Dosage: 60 MILLIGRAM, QD
     Route: 065
  4. MAGNESIUM [Suspect]
     Active Substance: MAGNESIUM
     Indication: Ventricular tachycardia
     Dosage: 1 GRAM, QH
     Route: 042
  5. MAGNESIUM [Suspect]
     Active Substance: MAGNESIUM
     Dosage: UNK
     Route: 048

REACTIONS (11)
  - Long QT syndrome congenital [Unknown]
  - Electrocardiogram QT prolonged [Unknown]
  - Maternal exposure during pregnancy [Unknown]
  - Oligohydramnios [Unknown]
  - Maternal exposure during pregnancy [Unknown]
  - Pre-eclampsia [Unknown]
  - Maternal exposure during pregnancy [Unknown]
  - Placental insufficiency [Unknown]
  - Maternal exposure during pregnancy [Unknown]
  - No adverse event [Unknown]
  - Off label use [Unknown]
